FAERS Safety Report 14509303 (Version 1)
Quarter: 2018Q1

REPORT INFORMATION
  Report Type: Spontaneous
  Country: FR (occurrence: FR)
  Receive Date: 20180209
  Receipt Date: 20180209
  Transmission Date: 20180509
  Serious: Yes (Other)
  Sender: FDA-Public Use
  Company Number: FR-ASTRAZENECA-2018SE14912

PATIENT
  Age: 69 Year
  Sex: Female
  Weight: 69 kg

DRUGS (1)
  1. XEROQUEL [Suspect]
     Active Substance: QUETIAPINE FUMARATE
     Indication: BIPOLAR DISORDER
     Route: 048
     Dates: start: 201610, end: 20170523

REACTIONS (5)
  - Speech disorder [Recovered/Resolved]
  - Extrapyramidal disorder [Recovered/Resolved]
  - Balance disorder [Recovered/Resolved]
  - Aphasia [Recovered/Resolved]
  - Tremor [Recovered/Resolved]

NARRATIVE: CASE EVENT DATE: 201611
